FAERS Safety Report 5748305-6 (Version None)
Quarter: 2008Q2

REPORT INFORMATION
  Report Type: 
  Country: None (occurrence: None)
  Receive Date: 20080520
  Receipt Date: 20080506
  Transmission Date: 20081010
  Serious: Yes (Other)
  Sender: FDA-Public Use
  Company Number: A-US2006-15059

PATIENT
  Age: 12 Year
  Sex: Male
  Weight: 42 kg

DRUGS (7)
  1. VENTAVIS [Suspect]
     Indication: PULMONARY ARTERIAL HYPERTENSION
     Dosage: 5 UG, 5-6 X DAY, RESPIRATORY; 2.5 UG, 7 X A DAY, RESPIRATORY
     Route: 055
     Dates: start: 20060718, end: 20060724
  2. VENTAVIS [Suspect]
     Indication: PULMONARY ARTERIAL HYPERTENSION
     Dosage: 5 UG, 5-6 X DAY, RESPIRATORY; 2.5 UG, 7 X A DAY, RESPIRATORY
     Route: 055
     Dates: start: 20060726, end: 20080320
  3. TRACLEER [Concomitant]
  4. REVATIO [Concomitant]
  5. ZYRTEC [Concomitant]
  6. ASA (ACETYLSALCYLIC ACID) [Concomitant]
  7. REMODULIN (TREPROSTINIL) [Concomitant]

REACTIONS (15)
  - ABDOMINAL PAIN UPPER [None]
  - ARTHROPOD BITE [None]
  - BRONCHIAL HYPERREACTIVITY [None]
  - BRONCHOSPASM [None]
  - EYE DISORDER [None]
  - MOVEMENT DISORDER [None]
  - NAUSEA [None]
  - OBSTRUCTIVE AIRWAYS DISORDER [None]
  - ORAL DISORDER [None]
  - PYREXIA [None]
  - RASH PRURITIC [None]
  - SKIN TIGHTNESS [None]
  - SWELLING [None]
  - SWELLING FACE [None]
  - URTICARIA [None]
